FAERS Safety Report 17273054 (Version 2)
Quarter: 2020Q1

REPORT INFORMATION
  Report Type: Spontaneous
  Country: GB (occurrence: GB)
  Receive Date: 20200115
  Receipt Date: 20200214
  Transmission Date: 20200409
  Serious: Yes (Other)
  Sender: FDA-Public Use
  Company Number: GB-ASTRAZENECA-2020SE04741

PATIENT
  Age: 24837 Day
  Sex: Male
  Weight: 111 kg

DRUGS (4)
  1. DAPAGLIFLOZIN. [Suspect]
     Active Substance: DAPAGLIFLOZIN
     Indication: TYPE 2 DIABETES MELLITUS
     Dosage: 10.0MG UNKNOWN
     Route: 048
     Dates: start: 20180605
  2. PIOGLITAZONE. [Concomitant]
     Active Substance: PIOGLITAZONE
  3. LINAGLIPTIN [Concomitant]
     Active Substance: LINAGLIPTIN
  4. METFORMIN [Concomitant]
     Active Substance: METFORMIN HYDROCHLORIDE

REACTIONS (2)
  - Peripheral vascular disorder [Unknown]
  - Arterial disorder [Unknown]

NARRATIVE: CASE EVENT DATE: 20200107
